FAERS Safety Report 19111456 (Version 2)
Quarter: 2021Q2

REPORT INFORMATION
  Report Type: Spontaneous
  Country: AT (occurrence: AT)
  Receive Date: 20210409
  Receipt Date: 20210430
  Transmission Date: 20210717
  Serious: Yes (Death, Other)
  Sender: FDA-Public Use
  Company Number: AT-GLAXOSMITHKLINE-AT2021EME078444

PATIENT
  Sex: Male
  Weight: 65 kg

DRUGS (1)
  1. BLENREP [Suspect]
     Active Substance: BELANTAMAB MAFODOTIN-BLMF
     Indication: PLASMA CELL MYELOMA
     Dosage: UNK, 2.5 MG/KG
     Route: 042
     Dates: start: 20210311

REACTIONS (5)
  - Plasma cell myeloma [Fatal]
  - Pancytopenia [Fatal]
  - Thrombocytopenia [Fatal]
  - Circulatory collapse [Fatal]
  - Anaemia [Fatal]
